FAERS Safety Report 22223987 (Version 2)
Quarter: 2023Q2

REPORT INFORMATION
  Report Type: Spontaneous
  Country: US (occurrence: US)
  Receive Date: 20230418
  Receipt Date: 20230627
  Transmission Date: 20230722
  Serious: No
  Sender: FDA-Public Use
  Company Number: US-PFIZER INC-PV202300069550

PATIENT
  Age: 72 Year
  Sex: Female
  Weight: 73.923 kg

DRUGS (1)
  1. IBRANCE [Suspect]
     Active Substance: PALBOCICLIB
     Indication: Breast cancer female
     Dosage: 125 MG

REACTIONS (7)
  - Pruritus [Unknown]
  - Back pain [Unknown]
  - Constipation [Unknown]
  - Decreased appetite [Unknown]
  - Taste disorder [Unknown]
  - Mastication disorder [Unknown]
  - Pain [Unknown]
